FAERS Safety Report 8543885-X (Version None)
Quarter: 2012Q3

REPORT INFORMATION
  Report Type: 
  Country: None (occurrence: None)
  Receive Date: 20120727
  Receipt Date: 20120723
  Transmission Date: 20120928
  Serious: Yes (Death, Hospitalization)
  Sender: FDA-Public Use
  Company Number: PHHY2012DE049280

PATIENT
  Sex: Male
  Weight: 84 kg

DRUGS (1)
  1. AFINITOR [Suspect]
     Indication: RENAL CELL CARCINOMA
     Dosage: 10 MG, QD
     Route: 048
     Dates: start: 20120126, end: 20120604

REACTIONS (4)
  - SEPSIS [None]
  - INFLAMMATION [None]
  - PYREXIA [None]
  - DEATH [None]
